FAERS Safety Report 5960020-2 (Version None)
Quarter: 2008Q4

REPORT INFORMATION
  Report Type: 
  Country: None (occurrence: None)
  Receive Date: 20081119
  Receipt Date: 20081119
  Transmission Date: 20090506
  Serious: Yes (Life-Threatening, Hospitalization)
  Sender: FDA-Public Use
  Company Number: None

PATIENT
  Sex: Female
  Weight: 53.1 kg

DRUGS (8)
  1. DILAUDID [Suspect]
     Indication: PAIN
     Dosage: TOTAL DOSE 2MG IV OVER 35MIN
     Route: 042
     Dates: start: 20080819
  2. PROMETHAZINE [Concomitant]
  3. HEPARIN [Concomitant]
  4. AMPICILLIN AND SULBACTAM [Concomitant]
  5. LEVOTHYROXINE SODIUM [Concomitant]
  6. PAROXETINE HCL [Concomitant]
  7. RANITIDINE [Concomitant]
  8. DEXTROSE 5%/0.45% NSS [Concomitant]

REACTIONS (3)
  - RESPIRATORY RATE DECREASED [None]
  - SOMNOLENCE [None]
  - UNRESPONSIVE TO STIMULI [None]
